FAERS Safety Report 9014549 (Version 2)
Quarter: 2013Q1

REPORT INFORMATION
  Report Type: Spontaneous
  Country: US (occurrence: US)
  Receive Date: 20130115
  Receipt Date: 20130226
  Transmission Date: 20140127
  Serious: Yes (Other)
  Sender: FDA-Public Use
  Company Number: US-AMGEN-USASP2013001782

PATIENT
  Age: 49 Year
  Sex: Male

DRUGS (3)
  1. ENBREL [Suspect]
     Indication: PSORIASIS
     Dosage: 50 MG/ML, 2 TIMES/WK
     Route: 058
     Dates: start: 200903, end: 20101130
  2. STELARA [Concomitant]
     Indication: PSORIASIS
     Dosage: 90 MG/ML, Q3MO
     Route: 058
     Dates: start: 20101221, end: 20121019
  3. HUMIRA [Concomitant]
     Indication: PSORIASIS
     Dosage: 40M/ 0.8ML, QOW
     Route: 058
     Dates: start: 20080109, end: 20090315

REACTIONS (2)
  - Prostate cancer [Not Recovered/Not Resolved]
  - Drug ineffective [Unknown]
